FAERS Safety Report 18176271 (Version 3)
Quarter: 2022Q3

REPORT INFORMATION
  Report Type: Spontaneous
  Country: CA (occurrence: CA)
  Receive Date: 20200820
  Receipt Date: 20220906
  Transmission Date: 20221027
  Serious: Yes (Other)
  Sender: FDA-Public Use
  Company Number: CA-PFIZER INC-2020050451

PATIENT
  Age: 60 Year
  Sex: Female

DRUGS (1)
  1. XELJANZ [Suspect]
     Active Substance: TOFACITINIB CITRATE
     Indication: Rheumatoid arthritis
     Dosage: 5 MG, 2X/DAY (BID)
     Route: 048
     Dates: start: 20200405

REACTIONS (5)
  - Cerebrovascular accident [Unknown]
  - Product dose omission issue [Unknown]
  - Psoriasis [Unknown]
  - Furuncle [Unknown]
  - Folliculitis [Unknown]

NARRATIVE: CASE EVENT DATE: 20200601
